FAERS Safety Report 18459443 (Version 1)
Quarter: 2020Q4

REPORT INFORMATION
  Report Type: Spontaneous
  Country: ES (occurrence: ES)
  Receive Date: 20201103
  Receipt Date: 20201103
  Transmission Date: 20210114
  Serious: Yes (Other)
  Sender: FDA-Public Use
  Company Number: ES-UCBSA-2020043289

PATIENT
  Age: 47 Year
  Sex: Male

DRUGS (6)
  1. LEVETIRACETAM. [Suspect]
     Active Substance: LEVETIRACETAM
     Indication: GENERALISED TONIC-CLONIC SEIZURE
     Dosage: 500 MILLIGRAM, 2X/DAY (BID)
     Dates: start: 201210, end: 201411
  2. LEVETIRACETAM. [Suspect]
     Active Substance: LEVETIRACETAM
     Dosage: ASCENDING DOSES
     Dates: start: 201509
  3. CLOBAZAM. [Concomitant]
     Active Substance: CLOBAZAM
     Indication: GENERALISED TONIC-CLONIC SEIZURE
     Dosage: 10 MILLIGRAM, ONCE DAILY (QD)
  4. VIMPAT [Suspect]
     Active Substance: LACOSAMIDE
     Dosage: UNK
  5. LAMOTRIGINE. [Concomitant]
     Active Substance: LAMOTRIGINE
     Indication: GENERALISED TONIC-CLONIC SEIZURE
     Dosage: 50 MILLIGRAM, ONCE DAILY (QD)
  6. VIMPAT [Suspect]
     Active Substance: LACOSAMIDE
     Indication: GENERALISED TONIC-CLONIC SEIZURE
     Dosage: 100 MILLIGRAM, 2X/DAY (BID)

REACTIONS (4)
  - Anxiety [Unknown]
  - Partial seizures with secondary generalisation [Recovering/Resolving]
  - Atrioventricular block second degree [Not Recovered/Not Resolved]
  - Irritability [Recovering/Resolving]

NARRATIVE: CASE EVENT DATE: 201811
